FAERS Safety Report 4854329-3 (Version None)
Quarter: 2005Q4

REPORT INFORMATION
  Report Type: 
  Country: None (occurrence: None)
  Receive Date: 20051215
  Receipt Date: 20050913
  Transmission Date: 20060501
  Serious: Yes (Life-Threatening, Hospitalization)
  Sender: FDA-Public Use
  Company Number: DE-BOEHRINGER INGELHEIM PHARMACEUTICALS, INC.-2005-DE-03704DE

PATIENT
  Age: 70 Year
  Sex: Female

DRUGS (3)
  1. AGGRENOX [Suspect]
     Indication: TRANSIENT ISCHAEMIC ATTACK
     Dosage: STRENGTH: 200 MG DIPYRIDAMOLE + 25 MG ACETYLICSALICYLICACID
     Route: 048
     Dates: start: 20050401
  2. AGGRENOX [Suspect]
     Indication: ATRIAL FIBRILLATION
  3. AGGRENOX [Suspect]
     Indication: CORONARY ARTERY DISEASE

REACTIONS (1)
  - CEREBROVASCULAR ACCIDENT [None]
